FAERS Safety Report 6462200-9 (Version None)
Quarter: 2009Q4

REPORT INFORMATION
  Report Type: 
  Country: None (occurrence: None)
  Receive Date: 20091130
  Receipt Date: 20091119
  Transmission Date: 20100525
  Serious: Yes (Hospitalization)
  Sender: FDA-Public Use
  Company Number: JP-BAYER-200914559BYL

PATIENT
  Age: 78 Year
  Sex: Female
  Weight: 55 kg

DRUGS (15)
  1. NEXAVAR [Suspect]
     Indication: HEPATIC NEOPLASM MALIGNANT
     Dosage: TOTAL DAILY DOSE: 800 MG  UNIT DOSE: 200 MG
     Route: 048
     Dates: start: 20090609
  2. NEXAVAR [Suspect]
     Dosage: UNIT DOSE: 200 MG
     Route: 048
     Dates: start: 20090727
  3. ALDACTONE [Concomitant]
     Dosage: SINCE BEFORE NEXAVAR ADMINISTRATION
     Route: 048
  4. NIFEDIPINE [Concomitant]
     Dosage: SINCE BEFORE NEXAVAR ADMINISTRATION
     Route: 048
  5. URSO 250 [Concomitant]
     Dosage: SINCE BEFORE NEXAVAR ADMINISTRATION
     Route: 048
  6. ADONA [Concomitant]
     Dosage: SINCE BEFORE NEXAVAR ADMINISTRATION
     Route: 048
     Dates: end: 20090713
  7. TRANSAMIN [Concomitant]
     Dosage: SINCE BEFORE NEXAVAR ADMINISTRATION
     Route: 048
     Dates: end: 20090713
  8. VOGLIBOSE [Concomitant]
     Dosage: SINCE BEFORE NEXAVAR ADMINISTRATION
     Route: 048
  9. ACTOS [Concomitant]
     Dosage: SINCE BEFORE NEXAVAR ADMINISTRATION
     Route: 048
  10. GLIMICRON [Concomitant]
     Dosage: SINCE BEFORE NEXAVAR ADMINISTRATION
     Route: 048
  11. NOVOLIN R [Concomitant]
     Dosage: SLIDE SCALE
     Route: 057
     Dates: start: 20090616, end: 20090101
  12. LAXOBERON [Concomitant]
     Route: 048
     Dates: start: 20090627
  13. EURAX [Concomitant]
     Indication: PROPHYLAXIS
     Route: 061
     Dates: start: 20090810, end: 20090910
  14. UREPEARL L [Concomitant]
     Indication: PROPHYLAXIS
     Route: 061
     Dates: start: 20090818, end: 20090910
  15. HIRUDOID [Concomitant]
     Indication: PROPHYLAXIS
     Route: 061
     Dates: start: 20090909, end: 20090918

REACTIONS (8)
  - ANAEMIA [None]
  - ASCITES [None]
  - DEMENTIA [None]
  - DIARRHOEA [None]
  - ECZEMA [None]
  - HYPOALBUMINAEMIA [None]
  - PALMAR-PLANTAR ERYTHRODYSAESTHESIA SYNDROME [None]
  - PERITONITIS BACTERIAL [None]
